FAERS Safety Report 22231329 (Version 2)
Quarter: 2023Q2

REPORT INFORMATION
  Report Type: Report from Study
  Country: US (occurrence: US)
  Receive Date: 20230420
  Receipt Date: 20230531
  Transmission Date: 20230721
  Serious: No
  Sender: FDA-Public Use
  Company Number: US-SA-SAC20230417001302

PATIENT
  Age: 19 Year
  Sex: Male
  Weight: 88.45 kg

DRUGS (1)
  1. DUPILUMAB [Suspect]
     Active Substance: DUPILUMAB
     Dosage: 300 MG, QOW
     Route: 058
     Dates: end: 202302

REACTIONS (3)
  - Visual impairment [Unknown]
  - Eye swelling [Unknown]
  - Swelling of eyelid [Unknown]
